FAERS Safety Report 6831090-4 (Version None)
Quarter: 2010Q3

REPORT INFORMATION
  Report Type: 
  Country: None (occurrence: None)
  Receive Date: 20100712
  Receipt Date: 20100707
  Transmission Date: 20110219
  Serious: Yes (Hospitalization)
  Sender: FDA-Public Use
  Company Number: CH-BAYER-201031556GPV

PATIENT
  Age: 78 Year
  Sex: Female

DRUGS (4)
  1. ASPIRIN [Suspect]
     Indication: PRODUCT USED FOR UNKNOWN INDICATION
     Route: 048
     Dates: start: 20060101, end: 20100310
  2. DICLOFENAC SODIUM [Suspect]
     Indication: PRODUCT USED FOR UNKNOWN INDICATION
     Route: 048
     Dates: end: 20100311
  3. AMLODIPINE [Concomitant]
     Route: 048
  4. ENALAPRIL MALEATE [Concomitant]
     Route: 048

REACTIONS (3)
  - DRUG ABUSE [None]
  - GASTRIC ULCER [None]
  - HAEMATEMESIS [None]
